FAERS Safety Report 13361825 (Version 5)
Quarter: 2017Q2

REPORT INFORMATION
  Report Type: Report from Study
  Country: US (occurrence: US)
  Receive Date: 20170323
  Receipt Date: 20170608
  Transmission Date: 20170830
  Serious: Yes (Hospitalization, Other)
  Sender: FDA-Public Use
  Company Number: US-GILEAD-2017-0263615

PATIENT
  Age: 60 Year
  Sex: Female

DRUGS (5)
  1. AMBRISENTAN [Suspect]
     Active Substance: AMBRISENTAN
     Indication: PRODUCT USED FOR UNKNOWN INDICATION
     Dosage: 10 MG, QD
     Route: 065
     Dates: start: 20110128
  2. SOLU-MEDROL [Concomitant]
     Active Substance: METHYLPREDNISOLONE SODIUM SUCCINATE
  3. ADCIRCA [Suspect]
     Active Substance: TADALAFIL
     Indication: PRODUCT USED FOR UNKNOWN INDICATION
     Dosage: UNK
     Route: 065
  4. ORENITRAM [Concomitant]
     Active Substance: TREPROSTINIL
  5. PREDNISONE. [Concomitant]
     Active Substance: PREDNISONE

REACTIONS (12)
  - Headache [Recovered/Resolved]
  - Pneumonia [Unknown]
  - Cough [Unknown]
  - Cardiac failure congestive [Unknown]
  - Pulmonary congestion [Unknown]
  - Dyspnoea [Unknown]
  - Swelling [Recovered/Resolved]
  - Oxygen saturation decreased [Unknown]
  - Flushing [Recovered/Resolved]
  - Chronic obstructive pulmonary disease [Unknown]
  - Nasal congestion [Recovered/Resolved]
  - Chest pain [Unknown]
